FAERS Safety Report 20605879 (Version 1)
Quarter: 2022Q1

REPORT INFORMATION
  Report Type: Spontaneous
  Country: SE (occurrence: SE)
  Receive Date: 20220317
  Receipt Date: 20220317
  Transmission Date: 20220423
  Serious: Yes (Other)
  Sender: FDA-Public Use
  Company Number: SE-CELLTRION INC.-2022SE002890

PATIENT

DRUGS (21)
  1. RITUXIMAB [Suspect]
     Active Substance: RITUXIMAB
     Indication: Product used for unknown indication
     Dosage: UNK
  2. TOCILIZUMAB [Suspect]
     Active Substance: TOCILIZUMAB
     Indication: Rheumatoid arthritis
     Dosage: UNK UNK, Q4WEEKS
  3. ALBUTEROL [Concomitant]
     Active Substance: ALBUTEROL
  4. BUDESONIDE [Concomitant]
     Active Substance: BUDESONIDE
  5. FORMOTEROL [Concomitant]
     Active Substance: FORMOTEROL
  6. SITAGLIPTIN [Concomitant]
     Active Substance: SITAGLIPTIN
  7. RANITIDINE [Concomitant]
     Active Substance: RANITIDINE
  8. FOLIC ACID [Concomitant]
     Active Substance: FOLIC ACID
  9. FUROSEMIDE [Concomitant]
     Active Substance: FUROSEMIDE
  10. FLUTICASONE [Concomitant]
     Active Substance: FLUTICASONE
  11. SIMVASTATIN [Concomitant]
     Active Substance: SIMVASTATIN
  12. WARFARIN [Concomitant]
     Active Substance: WARFARIN
  13. MONTELUKAST [Concomitant]
     Active Substance: MONTELUKAST SODIUM
  14. BECLOMETHASONE DIPROPIONATE [Concomitant]
     Active Substance: BECLOMETHASONE DIPROPIONATE
  15. PANTOPRAZOLE [Concomitant]
     Active Substance: PANTOPRAZOLE
  16. PREDNISONE [Concomitant]
     Active Substance: PREDNISONE
  17. METHOTREXATE [Concomitant]
     Active Substance: METHOTREXATE
  18. IPRATROPIUM [Concomitant]
     Active Substance: IPRATROPIUM
  19. SALMETEROL [Concomitant]
     Active Substance: SALMETEROL
  20. METFORMIN [Concomitant]
     Active Substance: METFORMIN HYDROCHLORIDE
  21. GABAPENTIN [Concomitant]
     Active Substance: GABAPENTIN

REACTIONS (4)
  - Gastric perforation [Unknown]
  - Pulmonary embolism [Unknown]
  - Oesophagitis [Unknown]
  - Tongue ulceration [Unknown]
